FAERS Safety Report 6379303-X (Version None)
Quarter: 2009Q3

REPORT INFORMATION
  Report Type: 
  Country: None (occurrence: None)
  Receive Date: 20090928
  Receipt Date: 20090918
  Transmission Date: 20100115
  Serious: Yes (Hospitalization)
  Sender: FDA-Public Use
  Company Number: BE-ASTRAZENECA-2009SE09660

PATIENT
  Age: 50 Year
  Sex: Male
  Weight: 76.5 kg

DRUGS (8)
  1. CRESTOR [Suspect]
     Route: 048
     Dates: start: 20060501
  2. ACETAMINOPHEN [Concomitant]
     Dosage: RARELY
  3. PLAVIX [Concomitant]
  4. ZESTRIL [Concomitant]
     Route: 048
  5. NOBITEN [Concomitant]
  6. TAMSOLIN [Concomitant]
  7. LYCO-MATO [Concomitant]
  8. CANRENOL [Concomitant]

REACTIONS (3)
  - DYSPEPSIA [None]
  - FOOD INTERACTION [None]
  - PARAESTHESIA [None]
